FAERS Safety Report 4349976-1 (Version None)
Quarter: 2004Q2

REPORT INFORMATION
  Report Type: 
  Country: None (occurrence: None)
  Receive Date: 20040428
  Receipt Date: 20040428
  Transmission Date: 20050107
  Serious: Yes (Life-Threatening, Disabling)
  Sender: FDA-Public Use
  Company Number: None

PATIENT
  Age: 60 Year
  Sex: Male
  Weight: 74.8435 kg

DRUGS (1)
  1. FOSAMAX [Suspect]
     Indication: OSTEOPOROSIS PROPHYLAXIS
     Dosage: 1 DAY
     Dates: start: 19940101, end: 20030315

REACTIONS (4)
  - ANGIONEUROTIC OEDEMA [None]
  - GUILLAIN-BARRE SYNDROME [None]
  - MULTIPLE ALLERGIES [None]
  - RHEUMATOID ARTHRITIS [None]
